FAERS Safety Report 7956245-7 (Version None)
Quarter: 2011Q4

REPORT INFORMATION
  Report Type: 
  Country: None (occurrence: None)
  Receive Date: 20111205
  Receipt Date: 20111128
  Transmission Date: 20120403
  Serious: Yes (Disabling)
  Sender: FDA-Public Use
  Company Number: US-JNJFOC-20111104455

PATIENT
  Sex: Female
  Weight: 63.5 kg

DRUGS (2)
  1. SIMPONI [Suspect]
     Indication: ANKYLOSING SPONDYLITIS
     Route: 058
     Dates: start: 20100501, end: 20111028
  2. LEXAPRO [Concomitant]
     Indication: DEPRESSION

REACTIONS (1)
  - UVEITIS [None]
